FAERS Safety Report 9467629 (Version 1)
Quarter: 2013Q3

REPORT INFORMATION
  Report Type: Spontaneous
  Country: GB (occurrence: GB)
  Receive Date: 20130821
  Receipt Date: 20130821
  Transmission Date: 20140515
  Serious: Yes (Other)
  Sender: FDA-Public Use
  Company Number: PHFR2013GB004804

PATIENT
  Age: 68 Year
  Sex: Male
  Weight: 77 kg

DRUGS (6)
  1. INDACATEROL [Suspect]
     Dosage: 150 UG, UNK
  2. VENTOLIN [Concomitant]
     Dosage: UNK UKN, UNK
  3. SIMVASTATIN [Concomitant]
     Dosage: UNK UKN, UNK
  4. OMEPRAZOLE [Concomitant]
     Dosage: UNK UKN, UNK
  5. CO-CODAMOL [Concomitant]
     Dosage: UNK UKN, UNK
  6. PIRITON [Concomitant]

REACTIONS (4)
  - Dyspnoea [Recovering/Resolving]
  - Malaise [Recovering/Resolving]
  - Chest pain [Recovering/Resolving]
  - Wheezing [Recovering/Resolving]
